FAERS Safety Report 6032996-9 (Version None)
Quarter: 2009Q1

REPORT INFORMATION
  Report Type: 
  Country: None (occurrence: None)
  Receive Date: 20090109
  Receipt Date: 20090107
  Transmission Date: 20090719
  Serious: Yes (Life-Threatening)
  Sender: FDA-Public Use
  Company Number: B0552667A

PATIENT
  Age: 25 Year
  Sex: Female

DRUGS (2)
  1. AMOXICILLIN + CLAVULANATE POTASSIUM [Suspect]
     Indication: CHOLECYSTITIS
     Route: 042
     Dates: start: 20081219, end: 20081219
  2. TRAMADOL HCL [Suspect]
     Indication: CHOLECYSTITIS
     Route: 042
     Dates: start: 20081219, end: 20081219

REACTIONS (1)
  - GRAND MAL CONVULSION [None]
